FAERS Safety Report 25827844 (Version 1)
Quarter: 2025Q3

REPORT INFORMATION
  Report Type: Spontaneous
  Country: US (occurrence: US)
  Receive Date: 20250921
  Receipt Date: 20250921
  Transmission Date: 20251021
  Serious: Yes (Other)
  Sender: UNICHEM
  Company Number: US-UNICHEM LABORATORIES LIMITED-UNI-2025-US-003253

PATIENT

DRUGS (2)
  1. PHENYTOIN SODIUM [Interacting]
     Active Substance: PHENYTOIN SODIUM
     Indication: Temporal lobe epilepsy
     Route: 065
  2. CANNABIS SATIVA SUBSP. INDICA TOP [Interacting]
     Active Substance: CANNABIS SATIVA SUBSP. INDICA TOP
     Indication: Insomnia
     Route: 065

REACTIONS (5)
  - Toxicity to various agents [Unknown]
  - Dystonia [Recovered/Resolved]
  - Myoclonus [Recovered/Resolved]
  - Chorea [Recovered/Resolved]
  - Dyskinesia [Recovered/Resolved]
